FAERS Safety Report 18237646 (Version 3)
Quarter: 2020Q4

REPORT INFORMATION
  Report Type: Report from Study
  Country: IT (occurrence: IT)
  Receive Date: 20200907
  Receipt Date: 20201014
  Transmission Date: 20210113
  Serious: Yes (Other)
  Sender: FDA-Public Use
  Company Number: IT-ACCORD-199710

PATIENT
  Age: 72 Year
  Sex: Female
  Weight: 40 kg

DRUGS (5)
  1. IRINOTECAN [Suspect]
     Active Substance: IRINOTECAN
     Indication: COLON CANCER
     Route: 042
     Dates: start: 20200227, end: 20200604
  2. OMEPRAZOLE EUROGENERICI [Concomitant]
     Dosage: STRENGTH: 20 MG
  3. FLUOROURACIL. [Suspect]
     Active Substance: FLUOROURACIL
     Indication: COLORECTAL ADENOCARCINOMA
     Dates: start: 20200227, end: 20200618
  4. ERBITUX [Suspect]
     Active Substance: CETUXIMAB
     Indication: COLON CANCER
     Dosage: STRENGTH: 5 MG/ML
  5. INHIXA [Concomitant]
     Active Substance: ENOXAPARIN SODIUM
     Dosage: STRENGTH: 10000 IU (100 MG)/ 1 ML

REACTIONS (2)
  - Diarrhoea [Unknown]
  - Hyperleukocytosis [Unknown]

NARRATIVE: CASE EVENT DATE: 20200618
